FAERS Safety Report 6581085-3 (Version None)
Quarter: 2010Q1

REPORT INFORMATION
  Report Type: 
  Country: None (occurrence: None)
  Receive Date: 20100215
  Receipt Date: 20100203
  Transmission Date: 20100710
  Serious: Yes (Hospitalization)
  Sender: FDA-Public Use
  Company Number: PHEH2009US13655

PATIENT
  Sex: Male
  Weight: 80.272 kg

DRUGS (13)
  1. EXJADE [Suspect]
     Indication: MYELODYSPLASTIC SYNDROME
     Dosage: 1000 MG, DAILY
     Route: 048
     Dates: end: 20100105
  2. EXJADE [Suspect]
     Indication: IRON OVERLOAD
  3. PRILOSEC [Concomitant]
  4. MIRTAZAPINE [Concomitant]
  5. LANTUS [Concomitant]
  6. PROCRIT [Concomitant]
  7. JANUVIA [Concomitant]
  8. MULTIVITAMIN ^LAPPE^ [Concomitant]
  9. ARANESP [Concomitant]
     Indication: ANAEMIA
     Dosage: 500 UG, EVERY THREE WEEKS
     Route: 058
     Dates: start: 20090924
  10. MORPHINE SULFATE [Concomitant]
     Indication: PAIN
     Dosage: 15 MG, EVERY FOUR HOURS AS NEEDED
     Route: 048
     Dates: start: 20090910
  11. METOCLOPRAMIDE [Concomitant]
  12. GLIMEPIRIDE [Concomitant]
  13. COLACE [Concomitant]

REACTIONS (3)
  - DIARRHOEA [None]
  - HAEMATOMA [None]
  - PYREXIA [None]
